FAERS Safety Report 25473308 (Version 2)
Quarter: 2025Q3

REPORT INFORMATION
  Report Type: Spontaneous
  Country: CA (occurrence: CA)
  Receive Date: 20250624
  Receipt Date: 20250708
  Transmission Date: 20251020
  Serious: Yes (Other)
  Sender: INCYTE
  Company Number: CA-EVENT-002464

PATIENT
  Age: 41 Year

DRUGS (6)
  1. PEMAZYRE [Suspect]
     Active Substance: PEMIGATINIB
     Indication: Glioblastoma
     Dosage: 13.5 MILLIGRAM, QD, 14 DAYS ON AND 7 DAYS OFF
  2. PEMAZYRE [Suspect]
     Active Substance: PEMIGATINIB
     Dosage: 13.5 MILLIGRAM, QD, 14 DAYS ON AND 7 DAYS OFF
  3. PEMAZYRE [Suspect]
     Active Substance: PEMIGATINIB
     Route: 065
  4. PEMAZYRE [Suspect]
     Active Substance: PEMIGATINIB
     Route: 065
  5. PEMAZYRE [Suspect]
     Active Substance: PEMIGATINIB
     Route: 065
  6. PEMAZYRE [Suspect]
     Active Substance: PEMIGATINIB
     Route: 065

REACTIONS (3)
  - Glioblastoma [Unknown]
  - Disease progression [Unknown]
  - Off label use [Unknown]
